FAERS Safety Report 7342904-6 (Version None)
Quarter: 2011Q1

REPORT INFORMATION
  Report Type: 
  Country: None (occurrence: None)
  Receive Date: 20110310
  Receipt Date: 20110308
  Transmission Date: 20110831
  Serious: Yes (Hospitalization)
  Sender: FDA-Public Use
  Company Number: US-ELI_LILLY_AND_COMPANY-US201103002938

PATIENT
  Sex: Male
  Weight: 129.25 kg

DRUGS (13)
  1. ASPIRIN [Concomitant]
     Indication: STENT PLACEMENT
     Dosage: 81 MG, DAILY (1/D)
  2. GLUCOPHAGE [Concomitant]
     Indication: DIABETES MELLITUS
     Dosage: 2000 MG, 2/D
     Route: 048
     Dates: start: 20091231
  3. DIABETA [Concomitant]
     Indication: DIABETES MELLITUS
     Dosage: 20 MG, 2/D
     Route: 048
     Dates: start: 20091231
  4. LASIX [Concomitant]
     Indication: HYPERTENSION
     Dosage: 20 MG, DAILY (1/D)
     Route: 048
     Dates: start: 20091231
  5. TOPROL-XL [Concomitant]
     Indication: HYPERTENSION
     Dosage: 50 MG, DAILY (1/D)
     Route: 048
     Dates: start: 20091231
  6. NAPROSYN [Concomitant]
     Indication: ARTHRITIS
     Dosage: 1000 MG, AS NEEDED
     Route: 048
     Dates: start: 20091231
  7. ACCUPRIL [Concomitant]
     Indication: DIABETES MELLITUS
     Dosage: 40 MG, DAILY (1/D)
     Route: 048
     Dates: start: 20091231
  8. PRASUGREL HYDROCHLORIDE [Suspect]
     Indication: ACUTE CORONARY SYNDROME
     Dosage: 60 MG, ONCE
     Dates: start: 20100323, end: 20100323
  9. PRASUGREL HYDROCHLORIDE [Suspect]
     Dosage: 10 MG, DAILY (1/D)
     Dates: start: 20100324
  10. NORVASC [Concomitant]
     Indication: HYPERTENSION
     Dosage: 2.5 MG, DAILY (1/D)
     Route: 048
  11. AVANDIA [Concomitant]
     Indication: DIABETES MELLITUS
     Dosage: 8 MG, DAILY (1/D)
     Route: 048
     Dates: start: 20091231
  12. SIMVASTATIN [Concomitant]
     Indication: HYPERLIPIDAEMIA
     Dosage: 40 MG, DAILY (1/D)
     Route: 048
     Dates: start: 20091231
  13. PRILOSEC [Concomitant]
     Indication: GASTROOESOPHAGEAL REFLUX DISEASE
     Dosage: 40 MG, 2/D
     Route: 048
     Dates: start: 20091231

REACTIONS (2)
  - RECTAL HAEMORRHAGE [None]
  - ABDOMINAL PAIN [None]
